FAERS Safety Report 11458856 (Version 2)
Quarter: 2015Q4

REPORT INFORMATION
  Report Type: Spontaneous
  Country: GB (occurrence: GB)
  Receive Date: 20150904
  Receipt Date: 20151008
  Transmission Date: 20160304
  Serious: Yes (Hospitalization)
  Sender: FDA-Public Use
  Company Number: GB-PFIZER INC-2015291498

PATIENT
  Age: 22 Year
  Sex: Female

DRUGS (20)
  1. PAROXETINE [Suspect]
     Active Substance: PAROXETINE\PAROXETINE HYDROCHLORIDE
     Dosage: 350 MG, UNK
  2. ZAPONEX [Suspect]
     Active Substance: CLOZAPINE
     Dosage: 2625 MG, UNK
     Route: 048
     Dates: start: 20150723, end: 20150723
  3. FOLIC ACID. [Concomitant]
     Active Substance: FOLIC ACID
     Dosage: 5 MG, 1X/DAY IN THE MORNING
  4. PAROXETINE [Concomitant]
     Active Substance: PAROXETINE\PAROXETINE HYDROCHLORIDE
     Dosage: 50 MG, 1X/DAY IN THE MORNING
  5. PRIADEL /00033702/ [Concomitant]
     Active Substance: LITHIUM CARBONATE
     Dosage: 1000 MG, 1X/DAY AT NIGHT
     Dates: end: 20150722
  6. FERROUS FUMARATE [Suspect]
     Active Substance: FERROUS FUMARATE
     Dosage: 2940 MG
  7. FOLIC ACID. [Suspect]
     Active Substance: FOLIC ACID
     Dosage: 35 MG, UNK
  8. FLUCONAZOLE. [Suspect]
     Active Substance: FLUCONAZOLE
     Dosage: 150 MG, UNK
  9. PRIADEL /00033702/ [Suspect]
     Active Substance: LITHIUM CARBONATE
     Dosage: 7000 MG, UNK
  10. ZAPONEX [Suspect]
     Active Substance: CLOZAPINE
     Dosage: 50MG IN THE MORNING, 150MG IN THE EVENING, 175MG AT NIGHT
     Route: 048
     Dates: start: 20131024, end: 20150722
  11. PRIADEL /00033702/ [Concomitant]
     Active Substance: LITHIUM CARBONATE
     Dosage: UNK
     Dates: start: 20150727
  12. FERROUS FUMARATE [Concomitant]
     Active Substance: FERROUS FUMARATE
     Dosage: 210 MG, 2X/DAY
  13. MONTELUKAST SODIUM. [Suspect]
     Active Substance: MONTELUKAST SODIUM
     Dosage: 70 MG, UNK
  14. HYOSCINE HYDROBROMIDE [Suspect]
     Active Substance: SCOPOLAMINE
     Dosage: 3150 MG, UNK
  15. FOSTAIR [Concomitant]
     Active Substance: BECLOMETHASONE\FORMOTEROL
     Dosage: 2 DF, 2X/DAY
     Route: 055
  16. FLUCONAZOLE. [Concomitant]
     Active Substance: FLUCONAZOLE
     Dosage: 150 MG, WEEKLY
  17. HYOSCINE HYDROBROMIDE [Concomitant]
     Active Substance: SCOPOLAMINE
     Dosage: 450 ?G, 1X/DAY AT NIGHT
  18. LANSOPRAZOLE. [Concomitant]
     Active Substance: LANSOPRAZOLE
     Dosage: 30 MG, 2X/DAY
  19. LANSOPRAZOLE. [Suspect]
     Active Substance: LANSOPRAZOLE
     Dosage: 420 MG, UNK
  20. MONTELUKAST [Concomitant]
     Active Substance: MONTELUKAST SODIUM
     Dosage: 10 MG, 1X/DAY AT NIGHT

REACTIONS (2)
  - Fatigue [Unknown]
  - Intentional overdose [Recovered/Resolved]

NARRATIVE: CASE EVENT DATE: 20150723
